FAERS Safety Report 24880638 (Version 1)
Quarter: 2025Q1

REPORT INFORMATION
  Report Type: Spontaneous
  Country: US (occurrence: US)
  Receive Date: 20250123
  Receipt Date: 20250123
  Transmission Date: 20250408
  Serious: No
  Sender: ANI
  Company Number: US-ANIPHARMA-2024-US-051825

PATIENT
  Sex: Female

DRUGS (1)
  1. KIONEX [Suspect]
     Active Substance: SODIUM POLYSTYRENE SULFONATE
     Indication: Caregiver
     Dates: start: 20240825

REACTIONS (1)
  - Injury [Unknown]

NARRATIVE: CASE EVENT DATE: 20240825
